FAERS Safety Report 10767005 (Version 3)
Quarter: 2015Q3

REPORT INFORMATION
  Report Type: Report from Study
  Country: US (occurrence: US)
  Receive Date: 20150205
  Receipt Date: 20150921
  Transmission Date: 20151125
  Serious: Yes (Death, Hospitalization, Other)
  Sender: FDA-Public Use
  Company Number: US-GILEAD-2015-0130041

PATIENT
  Age: 75 Year
  Sex: Female

DRUGS (1)
  1. AMBRISENTAN [Suspect]
     Active Substance: AMBRISENTAN
     Indication: PULMONARY HYPERTENSION
     Dosage: 10 MG, QD
     Route: 065
     Dates: start: 20111017, end: 201501

REACTIONS (19)
  - Dialysis [Not Recovered/Not Resolved]
  - Thrombocytosis [Not Recovered/Not Resolved]
  - Cyanosis [Not Recovered/Not Resolved]
  - Hypoxia [Fatal]
  - Skin discolouration [Not Recovered/Not Resolved]
  - Clostridium test positive [Not Recovered/Not Resolved]
  - Oxygen supplementation [Not Recovered/Not Resolved]
  - Pleural effusion [Not Recovered/Not Resolved]
  - Staphylococcal infection [Fatal]
  - Unresponsive to stimuli [Not Recovered/Not Resolved]
  - Dyspnoea [Not Recovered/Not Resolved]
  - Polycythaemia [Not Recovered/Not Resolved]
  - Diarrhoea [Not Recovered/Not Resolved]
  - Chronic respiratory failure [Fatal]
  - Cardiac failure congestive [Not Recovered/Not Resolved]
  - Cardiac arrest [Fatal]
  - Lung disorder [Fatal]
  - Pneumonia [Fatal]
  - Respiratory arrest [Not Recovered/Not Resolved]

NARRATIVE: CASE EVENT DATE: 20150412
